FAERS Safety Report 5201252-0 (Version None)
Quarter: 2007Q1

REPORT INFORMATION
  Report Type: 
  Country: None (occurrence: None)
  Receive Date: 20070103
  Receipt Date: 20061220
  Transmission Date: 20070707
  Serious: Yes (Other)
  Sender: FDA-Public Use
  Company Number: 06DK000849

PATIENT
  Age: 62 Year
  Sex: Female

DRUGS (1)
  1. LITHIUM CARBONATE [Suspect]
     Indication: DEPRESSION

REACTIONS (4)
  - HAEMODIALYSIS [None]
  - HYPERTENSION [None]
  - RENAL FAILURE CHRONIC [None]
  - THIRST [None]
